FAERS Safety Report 22602016 (Version 2)
Quarter: 2023Q2

REPORT INFORMATION
  Report Type: Report from Study
  Country: US (occurrence: US)
  Receive Date: 20230614
  Receipt Date: 20230616
  Transmission Date: 20230722
  Serious: Yes (Life-Threatening, Other)
  Sender: FDA-Public Use
  Company Number: US-ALNYLAM PHARMACEUTICALS, INC.-ALN-2023-002697

PATIENT

DRUGS (2)
  1. ONPATTRO [Suspect]
     Active Substance: PATISIRAN SODIUM
     Indication: Hereditary neuropathic amyloidosis
     Dosage: WGT DOSING, Q3W
     Route: 042
     Dates: start: 20210527
  2. MORPHINE [Concomitant]
     Active Substance: MORPHINE
     Indication: Product used for unknown indication
     Dosage: UNK
     Route: 065

REACTIONS (7)
  - Disease progression [Unknown]
  - Spinal fusion surgery [Unknown]
  - Limb operation [Unknown]
  - Anger [Unknown]
  - Pain [Not Recovered/Not Resolved]
  - Gait disturbance [Unknown]
  - Hospice care [Unknown]
